FAERS Safety Report 5294430-6 (Version None)
Quarter: 2007Q2

REPORT INFORMATION
  Report Type: 
  Country: None (occurrence: None)
  Receive Date: 20070409
  Receipt Date: 20070409
  Transmission Date: 20071010
  Serious: No
  Sender: FDA-Public Use
  Company Number: None

PATIENT
  Sex: Male
  Weight: 57 kg

DRUGS (1)
  1. AMIKACIN [Suspect]
     Indication: CYSTIC FIBROSIS
     Dosage: AMIKACIN 750MG EVERY 24 HOUR IV DRIP
     Route: 041
     Dates: start: 20070324, end: 20070331

REACTIONS (1)
  - RASH PRURITIC [None]
